FAERS Safety Report 8880852 (Version 1)
Quarter: 2012Q4

REPORT INFORMATION
  Report Type: 
  Country: US (occurrence: US)
  Receive Date: 20121101
  Receipt Date: 20121101
  Transmission Date: 20130627
  Serious: Yes (Other)
  Sender: FDA-Public Use
  Company Number: US-ELI_LILLY_AND_COMPANY-US201210007796

PATIENT
  Age: 55 Year
  Sex: Male

DRUGS (7)
  1. ZYPREXA RELPREVV [Suspect]
     Indication: SCHIZOPHRENIA
     Dosage: 300 mg, UNK
  2. BENADRYL [Concomitant]
     Dosage: UNK, prn
  3. DEPAKOTE ER [Concomitant]
  4. DITROPAN [Concomitant]
  5. NEXIUM [Concomitant]
  6. RISPERDAL [Concomitant]
  7. SIMVASTATIN [Concomitant]

REACTIONS (2)
  - Fall [Unknown]
  - Musculoskeletal discomfort [Unknown]
